FAERS Safety Report 5986914-X (Version None)
Quarter: 2008Q4

REPORT INFORMATION
  Report Type: 
  Country: None (occurrence: None)
  Receive Date: 20081125
  Receipt Date: 20081111
  Transmission Date: 20090506
  Serious: Yes (Death, Other)
  Sender: FDA-Public Use
  Company Number: THYM-1000831

PATIENT
  Age: 6 Year

DRUGS (4)
  1. THYMOGLOBULIN [Suspect]
     Indication: CORD BLOOD TRANSPLANT THERAPY
     Dosage: 2.5 MG/KG
  2. CYCLOSPORINE [Suspect]
     Indication: CORD BLOOD TRANSPLANT THERAPY
     Dosage: 5 MG/KG
  3. CYCLOPHOSPHAMIDE [Suspect]
     Indication: CORD BLOOD TRANSPLANT THERAPY
     Dosage: 60 MG/KG, INTRAVENOUS
     Route: 042
  4. TREOSULFAN (TREOSULFAN) [Suspect]
     Indication: CORD BLOOD TRANSPLANT THERAPY
     Dosage: 12 G/M2, INTRAVENOUS
     Route: 042

REACTIONS (3)
  - CYTOMEGALOVIRUS INFECTION [None]
  - DISEASE PROGRESSION [None]
  - EPSTEIN-BARR VIRUS INFECTION [None]
